FAERS Safety Report 5591280-8 (Version None)
Quarter: 2008Q1

REPORT INFORMATION
  Report Type: 
  Country: None (occurrence: None)
  Receive Date: 20080111
  Receipt Date: 20080102
  Transmission Date: 20080703
  Serious: Yes (Hospitalization)
  Sender: FDA-Public Use
  Company Number: 2008-00001

PATIENT
  Age: 20 Year
  Sex: Male

DRUGS (4)
  1. PROMETHAZINE HCL [Suspect]
     Indication: PAIN
     Dosage: 50 MG, SINGLE, INTRAMUSCULAR
     Route: 030
     Dates: start: 20070101, end: 20070101
  2. MEPERIDINE HCL [Suspect]
     Indication: PAIN
     Dosage: 50 MG, SINGLE, INTRAMUSCULAR
     Route: 030
     Dates: start: 20070101, end: 20070101
  3. PROPOFOL [Suspect]
     Indication: SEDATION
     Dosage: 160 MG, OVER 5 MINUTES, INTRAVENOUS
     Route: 042
     Dates: start: 20070101, end: 20070101
  4. ETHANOL(ETHANOL) [Suspect]
     Indication: ALCOHOL USE
     Dosage: ORAL
     Route: 048
     Dates: start: 20070101

REACTIONS (3)
  - ALCOHOL USE [None]
  - ANTICHOLINERGIC SYNDROME [None]
  - POTENTIATING DRUG INTERACTION [None]
